FAERS Safety Report 16730099 (Version 1)
Quarter: 2019Q3

REPORT INFORMATION
  Report Type: Spontaneous
  Country: None (occurrence: US)
  Receive Date: 20190822
  Receipt Date: 20190822
  Transmission Date: 20191005
  Serious: No
  Sender: FDA-Public Use
  Company Number: US-PACIRA-201600075

PATIENT
  Age: 36 Year
  Sex: Female
  Weight: 47 kg

DRUGS (2)
  1. CEPHALEXIN. [Concomitant]
     Active Substance: CEPHALEXIN
     Indication: PRODUCT USED FOR UNKNOWN INDICATION
     Dosage: UNK UNK, UNK, FREQUENCY : UNK
     Route: 065
  2. EXPAREL [Suspect]
     Active Substance: BUPIVACAINE
     Indication: POSTOPERATIVE ANALGESIA
     Dosage: SPLIT DOSE 1/2 BEFORE SURGERY, 1/2 AFTER, FREQUENCY : 1X
     Route: 050
     Dates: start: 20151223, end: 20151223

REACTIONS (2)
  - Maternal exposure during breast feeding [Recovered/Resolved]
  - Inadequate analgesia [Recovered/Resolved]

NARRATIVE: CASE EVENT DATE: 20151224
